FAERS Safety Report 9374574 (Version 1)
Quarter: 2013Q2

REPORT INFORMATION
  Report Type: Report from Study
  Country: CA (occurrence: CA)
  Receive Date: 20130628
  Receipt Date: 20130628
  Transmission Date: 20140414
  Serious: Yes (Other)
  Sender: FDA-Public Use
  Company Number: CA-JNJFOC-20130613330

PATIENT
  Age: 62 Year
  Sex: Female
  Weight: 112 kg

DRUGS (7)
  1. REMICADE [Suspect]
     Indication: CROHN^S DISEASE
     Route: 042
     Dates: start: 20120326
  2. SYNTHROID [Concomitant]
     Route: 065
  3. TECTA [Concomitant]
     Route: 065
  4. VITAMIN D [Concomitant]
     Route: 065
  5. CALCIUM [Concomitant]
     Route: 065
  6. GABAPENTIN [Concomitant]
     Route: 065
  7. TYLENOL [Concomitant]
     Route: 065

REACTIONS (2)
  - Pneumonia [Recovered/Resolved]
  - Sciatica [Recovered/Resolved]
